FAERS Safety Report 9785739 (Version 1)
Quarter: 2013Q4

REPORT INFORMATION
  Report Type: Spontaneous
  Country: AU (occurrence: None)
  Receive Date: 20131223
  Receipt Date: 20131223
  Transmission Date: 20140711
  Serious: Yes (Other)
  Sender: FDA-Public Use
  Company Number: 2013000356

PATIENT
  Sex: Male

DRUGS (4)
  1. ACEON (PERINDOPRIL ERBUMINE) TABLET [Suspect]
     Indication: PRODUCT USED FOR UNKNOWN INDICATION
  2. CARDIZEM [Suspect]
     Indication: PRODUCT USED FOR UNKNOWN INDICATION
  3. SOLPRIN (ACETYLSALICYLATE CALCIUM) [Concomitant]
  4. TENORMIN (ATENOLOL) [Concomitant]

REACTIONS (3)
  - Gravitational oedema [None]
  - Stomatitis [None]
  - Face oedema [None]
